FAERS Safety Report 13717407 (Version 2)
Quarter: 2017Q3

REPORT INFORMATION
  Report Type: Report from Study
  Country: CA (occurrence: CA)
  Receive Date: 20170705
  Receipt Date: 20170724
  Transmission Date: 20171127
  Serious: Yes (Other)
  Sender: FDA-Public Use
  Company Number: CA-JNJFOC-20170627115

PATIENT
  Age: 53 Year
  Sex: Female
  Weight: 86 kg

DRUGS (1)
  1. STELARA [Suspect]
     Active Substance: USTEKINUMAB
     Indication: CROHN^S DISEASE
     Route: 058
     Dates: start: 20160111

REACTIONS (5)
  - Abdominal pain [Unknown]
  - General physical health deterioration [Unknown]
  - Drug ineffective [Unknown]
  - Frequent bowel movements [Unknown]
  - Headache [Unknown]

NARRATIVE: CASE EVENT DATE: 20170627
